FAERS Safety Report 11292801 (Version 1)
Quarter: 2015Q3

REPORT INFORMATION
  Report Type: Report from Study
  Country: BR (occurrence: BR)
  Receive Date: 20150722
  Receipt Date: 20150722
  Transmission Date: 20151125
  Serious: Yes (Death, Life-Threatening)
  Sender: FDA-Public Use
  Company Number: PHHY2015BR086161

PATIENT
  Age: 84 Year
  Sex: Female

DRUGS (1)
  1. EXELON PATCH [Suspect]
     Active Substance: RIVASTIGMINE
     Indication: DEMENTIA ALZHEIMER^S TYPE
     Dosage: PATCH 10 (CM2)
     Route: 062

REACTIONS (3)
  - Head injury [Fatal]
  - Coma [Fatal]
  - Fall [Fatal]

NARRATIVE: CASE EVENT DATE: 201310
